FAERS Safety Report 7730498-2 (Version None)
Quarter: 2011Q3

REPORT INFORMATION
  Report Type: 
  Country: None (occurrence: None)
  Receive Date: 20110901
  Receipt Date: 20110901
  Transmission Date: 20111222
  Serious: Yes (Life-Threatening)
  Sender: FDA-Public Use
  Company Number: None

PATIENT
  Sex: Female
  Weight: 86.1834 kg

DRUGS (1)
  1. AMIODARONE HCL [Suspect]
     Indication: ATRIAL FIBRILLATION
     Dosage: 200 MG TID 30 DAYS  BID 30 DAYS 1 DAILY PO
     Route: 048

REACTIONS (3)
  - GOITRE [None]
  - CORNEAL DEPOSITS [None]
  - INTERSTITIAL LUNG DISEASE [None]
